FAERS Safety Report 11684322 (Version 1)
Quarter: 2015Q4

REPORT INFORMATION
  Report Type: Spontaneous
  Country: US (occurrence: US)
  Receive Date: 20151029
  Receipt Date: 20151029
  Transmission Date: 20160304
  Serious: No
  Sender: FDA-Public Use
  Company Number: US-ASTRAZENECA-2015SE99428

PATIENT
  Sex: Male
  Weight: 88.5 kg

DRUGS (8)
  1. PRAMIPEXOLE. [Concomitant]
     Active Substance: PRAMIPEXOLE
     Indication: RESTLESS LEGS SYNDROME
     Dosage: DAILY
  2. ATORVASTATIN [Concomitant]
     Active Substance: ATORVASTATIN
     Indication: BLOOD CHOLESTEROL ABNORMAL
  3. LEVEMIR [Concomitant]
     Active Substance: INSULIN DETEMIR
  4. BYDUREON [Suspect]
     Active Substance: EXENATIDE
     Indication: TYPE 2 DIABETES MELLITUS
     Route: 058
     Dates: start: 2015
  5. INVOKANA [Concomitant]
     Active Substance: CANAGLIFLOZIN
     Indication: DIABETES MELLITUS
  6. GABAPENTIN. [Concomitant]
     Active Substance: GABAPENTIN
     Indication: PARAESTHESIA
     Dosage: THREE TIMES A DAY
  7. BYDUREON [Suspect]
     Active Substance: EXENATIDE
     Indication: TYPE 2 DIABETES MELLITUS
     Dosage: 2 MG ONCE A WEEK, KIT
     Route: 058
     Dates: end: 2015
  8. LISINOPRIL. [Suspect]
     Active Substance: LISINOPRIL
     Indication: BLOOD PRESSURE ABNORMAL
     Route: 048

REACTIONS (12)
  - Injection site extravasation [Unknown]
  - Underdose [Unknown]
  - Product quality issue [Unknown]
  - Pyrexia [Unknown]
  - Injection site pain [Unknown]
  - Weight decreased [Unknown]
  - Injection site nodule [Unknown]
  - Oropharyngeal pain [Unknown]
  - Aphonia [Recovering/Resolving]
  - Injection site haemorrhage [Unknown]
  - Drug dose omission [Unknown]
  - Off label use [Unknown]
